FAERS Safety Report 10315044 (Version 1)
Quarter: 2014Q3

REPORT INFORMATION
  Report Type: Report from Study
  Country: AR (occurrence: AR)
  Receive Date: 20140718
  Receipt Date: 20140718
  Transmission Date: 20150326
  Serious: Yes (Death, Hospitalization)
  Sender: FDA-Public Use
  Company Number: PHHY2014AR087636

PATIENT
  Sex: Male

DRUGS (4)
  1. ONBREZ [Suspect]
     Active Substance: INDACATEROL
     Indication: OFF LABEL USE
  2. ONBREZ [Suspect]
     Active Substance: INDACATEROL
     Indication: ASTHMA
  3. DIOVAN D [Suspect]
     Active Substance: HYDROCHLOROTHIAZIDE\VALSARTAN
     Indication: HYPERTENSION
     Dosage: 1 DF (VALS 80 MG / HYDR 12.5 MG), UNK
     Route: 048
  4. ONBREZ [Suspect]
     Active Substance: INDACATEROL
     Indication: CHRONIC OBSTRUCTIVE PULMONARY DISEASE
     Dosage: UNK UKN, UNK
     Route: 055
     Dates: start: 2013

REACTIONS (8)
  - Productive cough [Fatal]
  - Asthma [Fatal]
  - Cough [Fatal]
  - Insomnia [Fatal]
  - Lung disorder [Fatal]
  - Blood glucose increased [Fatal]
  - Cardiac failure [Fatal]
  - Blood pressure increased [Fatal]
